FAERS Safety Report 6022722-1 (Version None)
Quarter: 2008Q4

REPORT INFORMATION
  Report Type: 
  Country: None (occurrence: None)
  Receive Date: 20081230
  Receipt Date: 20081218
  Transmission Date: 20090506
  Serious: Yes (Other)
  Sender: FDA-Public Use
  Company Number: BR-PFIZER INC-2008067869

PATIENT

DRUGS (3)
  1. DETRUSITOL LA [Suspect]
     Indication: HYPERTONIC BLADDER
     Route: 048
     Dates: start: 20080604
  2. ATENOLOL [Concomitant]
     Dates: start: 19980101
  3. HYGROTON [Concomitant]
     Dates: start: 19980101

REACTIONS (1)
  - CYSTITIS [None]
